FAERS Safety Report 6694659-6 (Version None)
Quarter: 2010Q2

REPORT INFORMATION
  Report Type: 
  Country: None (occurrence: None)
  Receive Date: 20100423
  Receipt Date: 20100415
  Transmission Date: 20101027
  Serious: Yes (Hospitalization)
  Sender: FDA-Public Use
  Company Number: GXKR2010GB04301

PATIENT
  Age: 61 Year
  Sex: Female

DRUGS (7)
  1. VINORELBINE [Suspect]
     Indication: NON-SMALL CELL LUNG CANCER
     Route: 065
  2. AMLODIPINE [Concomitant]
     Dosage: 5 MG, UNK
     Route: 048
  3. CHLORPHENAMINE [Concomitant]
     Indication: CHEMOTHERAPY
     Dosage: 4 MG, UNK
     Route: 048
  4. CIPROFLOXACIN [Concomitant]
     Indication: CHEMOTHERAPY
     Route: 048
  5. LISINOPRIL [Concomitant]
     Dosage: 20 MG, UNK
     Route: 048
  6. METOCLOPRAMIDE HYDROCHLORIDE [Concomitant]
     Indication: CHEMOTHERAPY
     Dosage: 10 MG, UNK
     Route: 048
  7. SIMVASTATIN [Concomitant]
     Dosage: 10 MG, UNK
     Route: 048

REACTIONS (2)
  - CHEST PAIN [None]
  - PLEURITIC PAIN [None]
